FAERS Safety Report 7531002-4 (Version None)
Quarter: 2011Q2

REPORT INFORMATION
  Report Type: 
  Country: None (occurrence: None)
  Receive Date: 20110531
  Receipt Date: 20110516
  Transmission Date: 20111010
  Serious: Yes (Hospitalization, Other)
  Sender: FDA-Public Use
  Company Number: 2011MA005954

PATIENT
  Age: 35 Year
  Sex: Female

DRUGS (1)
  1. FLUOXETINE [Suspect]
     Indication: DEPRESSION
     Dosage: 60 MG;QD;

REACTIONS (11)
  - SPASMODIC DYSPHONIA [None]
  - LARGE INTESTINAL ULCER HAEMORRHAGE [None]
  - STRIDOR [None]
  - DYSTONIA [None]
  - GASTROINTESTINAL MUCOSAL EXFOLIATION [None]
  - LEUKOCYTOSIS [None]
  - BLOOD PRESSURE SYSTOLIC INCREASED [None]
  - MULTIPLE DRUG OVERDOSE [None]
  - MUSCLE TWITCHING [None]
  - DYSPNOEA [None]
  - GASTROINTESTINAL OEDEMA [None]
